FAERS Safety Report 6220947-3 (Version None)
Quarter: 2009Q2

REPORT INFORMATION
  Report Type: 
  Country: None (occurrence: None)
  Receive Date: 20090610
  Receipt Date: 20090603
  Transmission Date: 20091009
  Serious: Yes (Death, Life-Threatening)
  Sender: FDA-Public Use
  Company Number: FR-ELI_LILLY_AND_COMPANY-FR200906001113

PATIENT
  Sex: Male
  Weight: 81 kg

DRUGS (10)
  1. DROTRECOGIN ALFA (ACTIVATED) [Suspect]
     Indication: SEPSIS
     Dosage: 24 UG/KG/H
     Route: 042
     Dates: start: 20061101
  2. HYPNOVEL [Concomitant]
     Indication: SEDATION
     Dates: start: 20061029
  3. SUFENTA PRESERVATIVE FREE [Concomitant]
     Indication: SEDATION
     Dates: start: 20061029
  4. DIPRIVAN [Concomitant]
     Indication: SEDATION
     Dosage: UNK, UNK
     Dates: start: 20061103, end: 20061105
  5. HYDROCORTISONE [Concomitant]
     Dates: start: 20061031, end: 20061106
  6. SYMBICORT [Concomitant]
  7. SPIRIVA [Concomitant]
  8. VASTAREL [Concomitant]
  9. TIMOPTIC [Concomitant]
  10. RED BLOOD CELLS [Concomitant]
     Dosage: 6 UNITS

REACTIONS (2)
  - MULTI-ORGAN FAILURE [None]
  - SHOCK HAEMORRHAGIC [None]
